FAERS Safety Report 5475327-5 (Version None)
Quarter: 2007Q4

REPORT INFORMATION
  Report Type: 
  Country: None (occurrence: None)
  Receive Date: 20071001
  Receipt Date: 20070914
  Transmission Date: 20080405
  Serious: Yes (Hospitalization)
  Sender: FDA-Public Use
  Company Number: 5939/2007S1007746

PATIENT
  Age: 17 Year
  Sex: Male

DRUGS (1)
  1. AMNESTEEM [Suspect]
     Indication: ACNE
     Dosage: 40  MG, QD, PO ALTERNATING
     Route: 048
     Dates: start: 20060402, end: 20060601

REACTIONS (6)
  - DRY SKIN [None]
  - INFECTIOUS MONONUCLEOSIS [None]
  - LIP DRY [None]
  - OBSTRUCTIVE AIRWAYS DISORDER [None]
  - TONSILLITIS [None]
  - WEIGHT DECREASED [None]
